FAERS Safety Report 6335125-7 (Version None)
Quarter: 2009Q3

REPORT INFORMATION
  Report Type: 
  Country: None (occurrence: None)
  Receive Date: 20090828
  Receipt Date: 20090828
  Transmission Date: 20100115
  Serious: Yes (Life-Threatening, Other)
  Sender: FDA-Public Use
  Company Number: None

PATIENT
  Age: 40 Year
  Sex: Male
  Weight: 90.7194 kg

DRUGS (1)
  1. SERAX [Suspect]
     Dosage: 1981 OR 2

REACTIONS (3)
  - HEART RATE INCREASED [None]
  - IMPAIRED WORK ABILITY [None]
  - PYREXIA [None]
